FAERS Safety Report 15731059 (Version 1)
Quarter: 2018Q4

REPORT INFORMATION
  Report Type: Spontaneous
  Country: US (occurrence: US)
  Receive Date: 20181217
  Receipt Date: 20181217
  Transmission Date: 20190205
  Serious: Yes (Hospitalization)
  Sender: FDA-Public Use
  Company Number: None

PATIENT
  Age: 46 Year
  Sex: Female
  Weight: 103.5 kg

DRUGS (1)
  1. BIMATOPROST OPHTHALMIC [Suspect]
     Active Substance: BIMATOPROST
     Indication: GROWTH OF EYELASHES
     Dosage: ?          QUANTITY:1 DROP(S);?
     Route: 061
     Dates: start: 20180522, end: 20180529

REACTIONS (3)
  - Eye irritation [None]
  - Madarosis [None]
  - Facial paralysis [None]

NARRATIVE: CASE EVENT DATE: 20180531
